FAERS Safety Report 25089515 (Version 3)
Quarter: 2025Q2

REPORT INFORMATION
  Report Type: Spontaneous
  Country: US (occurrence: US)
  Receive Date: 20250318
  Receipt Date: 20250630
  Transmission Date: 20250716
  Serious: No
  Sender: ITALFARMACO SPA
  Company Number: US-ITALFARMACO SPA-2173127

PATIENT
  Age: 18 Year
  Sex: Male
  Weight: 40.10 kg

DRUGS (19)
  1. DUVYZAT [Suspect]
     Active Substance: GIVINOSTAT
     Indication: Duchenne muscular dystrophy
     Dates: start: 20241020
  2. PROVENTIL [Concomitant]
     Active Substance: ALBUTEROL
  3. VAMOROLONE [Concomitant]
     Active Substance: VAMOROLONE
  4. DEPO-TESTOSTERONE [Concomitant]
     Active Substance: TESTOSTERONE CYPIONATE
  5. DIETARY SUPPLEMENT [Concomitant]
     Active Substance: DIETARY SUPPLEMENT
  6. MAGNESIUM CITRATE [Concomitant]
     Active Substance: MAGNESIUM CITRATE
  7. PRINIVIL [Concomitant]
     Active Substance: LISINOPRIL
  8. XOPENEX [Concomitant]
     Active Substance: LEVALBUTEROL HYDROCHLORIDE
  9. SOLU-CORTEF [Concomitant]
     Active Substance: HYDROCORTISONE SODIUM SUCCINATE
  10. CORTEF [Concomitant]
     Active Substance: HYDROCORTISONE
  11. TENEX [Concomitant]
     Active Substance: GUANFACINE HYDROCHLORIDE
  12. FLUTICASONE PROPIONATE [Concomitant]
     Active Substance: FLUTICASONE PROPIONATE
  13. EPLERENONE [Concomitant]
     Active Substance: EPLERENONE
  14. DEFLAZACORT [Concomitant]
     Active Substance: DEFLAZACORT
  15. CHOLECALCIFEROL [Concomitant]
     Active Substance: CHOLECALCIFEROL
  16. CALCIUM CARBONATE [Concomitant]
     Active Substance: CALCIUM CARBONATE
  17. TUMS [Concomitant]
     Active Substance: CALCIUM CARBONATE
  18. PULMICORT TURBUHALER [Concomitant]
     Active Substance: BUDESONIDE
  19. ALBUTEROL SULFATE [Concomitant]
     Active Substance: ALBUTEROL SULFATE

REACTIONS (2)
  - Blood bilirubin increased [Unknown]
  - Off label use [Unknown]
